FAERS Safety Report 6047683-0 (Version None)
Quarter: 2009Q1

REPORT INFORMATION
  Report Type: 
  Country: None (occurrence: None)
  Receive Date: 20090123
  Receipt Date: 20090115
  Transmission Date: 20090719
  Serious: Yes (Hospitalization)
  Sender: FDA-Public Use
  Company Number: FR-JNJFOC-20081203272

PATIENT
  Sex: Male

DRUGS (5)
  1. REMINYL LP [Suspect]
     Indication: DRUG USE FOR UNKNOWN INDICATION
     Route: 048
  2. ZESTORETIC [Concomitant]
  3. LERCAN [Concomitant]
  4. NORSET [Concomitant]
  5. NOCTAMIDE [Concomitant]

REACTIONS (1)
  - DERMATITIS BULLOUS [None]
